FAERS Safety Report 7057775-5 (Version None)
Quarter: 2010Q4

REPORT INFORMATION
  Report Type: 
  Country: None (occurrence: None)
  Receive Date: 20101021
  Receipt Date: 20101021
  Transmission Date: 20110411
  Serious: Yes (Death, Hospitalization)
  Sender: FDA-Public Use
  Company Number: None

PATIENT
  Sex: Male
  Weight: 67.6 kg

DRUGS (3)
  1. BUSULFAN [Suspect]
     Dosage: 864 MG
     Dates: end: 20100913
  2. ETOPOSIDE [Suspect]
     Dosage: 4000 MG
     Dates: end: 20100914
  3. G-CSF (FILGRASTIM, AMGEN) [Suspect]
     Dosage: 6240 MCG
     Dates: end: 20100926

REACTIONS (9)
  - ACIDOSIS [None]
  - ATRIAL FIBRILLATION [None]
  - CARDIAC ARREST [None]
  - ESCHERICHIA TEST POSITIVE [None]
  - HAEMATEMESIS [None]
  - HYPOTENSION [None]
  - HYPOXIA [None]
  - PYREXIA [None]
  - SMALL INTESTINAL OBSTRUCTION [None]
